FAERS Safety Report 8574142-3 (Version None)
Quarter: 2012Q3

REPORT INFORMATION
  Report Type: 
  Country: None (occurrence: None)
  Receive Date: 20120806
  Receipt Date: 20120724
  Transmission Date: 20120928
  Serious: Yes (Hospitalization, Other)
  Sender: FDA-Public Use
  Company Number: CA-JNJFOC-20120713849

PATIENT
  Sex: Female
  Weight: 83.3 kg

DRUGS (3)
  1. BETAGAN [Concomitant]
     Route: 065
  2. REMICADE [Suspect]
     Indication: RHEUMATOID ARTHRITIS
     Route: 042
     Dates: start: 20120417
  3. METHAZOLAMIDE [Concomitant]
     Route: 065

REACTIONS (1)
  - ELBOW OPERATION [None]
